FAERS Safety Report 23093389 (Version 2)
Quarter: 2023Q4

REPORT INFORMATION
  Report Type: Report from Study
  Country: US (occurrence: US)
  Receive Date: 20231022
  Receipt Date: 20231121
  Transmission Date: 20240109
  Serious: Yes (Other)
  Sender: FDA-Public Use
  Company Number: US-ABBVIE-5456372

PATIENT
  Sex: Female

DRUGS (2)
  1. VENCLEXTA [Suspect]
     Active Substance: VENETOCLAX
     Indication: Chronic lymphocytic leukaemia
     Route: 048
     Dates: start: 20230815
  2. GAZYVA [Suspect]
     Active Substance: OBINUTUZUMAB
     Indication: Product used for unknown indication
     Route: 042

REACTIONS (5)
  - Stoma site discharge [Recovering/Resolving]
  - Fatigue [Not Recovered/Not Resolved]
  - Stoma site infection [Recovering/Resolving]
  - Wound [Recovering/Resolving]
  - Stoma creation [Recovering/Resolving]

NARRATIVE: CASE EVENT DATE: 20230101
